FAERS Safety Report 13382073 (Version 1)
Quarter: 2017Q1

REPORT INFORMATION
  Report Type: Spontaneous
  Country: DE (occurrence: DE)
  Receive Date: 20170329
  Receipt Date: 20170329
  Transmission Date: 20170429
  Serious: Yes (Hospitalization)
  Sender: FDA-Public Use
  Company Number: PHHY2017DE044436

PATIENT
  Sex: Female

DRUGS (3)
  1. SANDIMMUN OPTORAL [Suspect]
     Active Substance: CYCLOSPORINE
     Indication: PRODUCT USED FOR UNKNOWN INDICATION
     Dosage: 10 MG, UNK
     Route: 065
  2. SANDIMMUN OPTORAL [Suspect]
     Active Substance: CYCLOSPORINE
     Dosage: 50 MG, UNK
     Route: 065
  3. SANDIMMUN OPTORAL [Suspect]
     Active Substance: CYCLOSPORINE
     Dosage: 25 MG, UNK
     Route: 065

REACTIONS (1)
  - Dysphagia [Unknown]
